FAERS Safety Report 19759050 (Version 3)
Quarter: 2021Q4

REPORT INFORMATION
  Report Type: Other
  Country: CH (occurrence: None)
  Receive Date: 20210827
  Receipt Date: 20211116
  Transmission Date: 20220303
  Serious: Yes (Hospitalization)
  Sender: FDA-Public Use
  Company Number: CH-ROCHE-2894592

PATIENT
  Age: 59 Year
  Sex: Female

DRUGS (4)
  1. OCREVUS [Suspect]
     Active Substance: OCRELIZUMAB
     Indication: Multiple sclerosis
     Dosage: ONGOING
     Route: 042
     Dates: start: 20180627
  2. DAFALGAN [Concomitant]
     Active Substance: ACETAMINOPHEN
     Route: 048
     Dates: start: 20210209, end: 20210209
  3. SOLU-MEDROL [Concomitant]
     Active Substance: METHYLPREDNISOLONE SODIUM SUCCINATE
     Route: 065
     Dates: start: 20210209, end: 20210209
  4. XYZAL [Concomitant]
     Active Substance: LEVOCETIRIZINE DIHYDROCHLORIDE
     Route: 065
     Dates: start: 20210209, end: 20210209

REACTIONS (7)
  - Soft tissue inflammation [Recovered/Resolved]
  - Cellulitis [Recovered/Resolved]
  - Multiple sclerosis pseudo relapse [Unknown]
  - Psoriasis [Unknown]
  - Intertrigo [Unknown]
  - Hypokalaemia [Unknown]
  - Intertrigo [Unknown]

NARRATIVE: CASE EVENT DATE: 20210813
